FAERS Safety Report 10198130 (Version 5)
Quarter: 2015Q2

REPORT INFORMATION
  Report Type: Spontaneous
  Country: US (occurrence: US)
  Receive Date: 20140527
  Receipt Date: 20150422
  Transmission Date: 20150821
  Serious: Yes (Hospitalization, Other)
  Sender: FDA-Public Use
  Company Number: US-PFIZER INC-2014142576

PATIENT
  Age: 61 Year
  Sex: Female
  Weight: 81.63 kg

DRUGS (8)
  1. XELJANZ [Suspect]
     Active Substance: TOFACITINIB CITRATE
     Indication: RHEUMATOID ARTHRITIS
     Dosage: 5 MG, 2X/DAY
     Route: 048
     Dates: start: 201305
  2. XELJANZ [Suspect]
     Active Substance: TOFACITINIB CITRATE
     Dosage: 5 MG, 2X/DAY
     Route: 048
     Dates: end: 20140526
  3. TYLENOL PM EXTRA STRENGTH [Concomitant]
     Active Substance: ACETAMINOPHEN\DIPHENHYDRAMINE HYDROCHLORIDE
  4. XELJANZ [Suspect]
     Active Substance: TOFACITINIB CITRATE
     Dosage: 5 MG, 2X/DAY
     Route: 048
     Dates: start: 20140530, end: 20140601
  5. XELJANZ [Suspect]
     Active Substance: TOFACITINIB CITRATE
     Dosage: 5 MG, 1X/DAY
     Route: 048
     Dates: end: 20150120
  6. COQ 10 [Concomitant]
     Active Substance: UBIDECARENONE
  7. COPAXONE [Concomitant]
     Active Substance: GLATIRAMER ACETATE
     Indication: MULTIPLE SCLEROSIS
     Dosage: 40 MM, CYCLIC (3X/WEEK)
     Dates: start: 2012
  8. OMEPRAZOLE. [Concomitant]
     Active Substance: OMEPRAZOLE
     Dosage: UNK, 1X/DAY (MORNINGS)

REACTIONS (20)
  - Abdominal distension [Recovered/Resolved]
  - Influenza like illness [Unknown]
  - Blood cholesterol increased [Recovered/Resolved]
  - Back pain [Unknown]
  - Gastric infection [Unknown]
  - Constipation [Unknown]
  - Pain [Recovering/Resolving]
  - Dyspepsia [Recovering/Resolving]
  - Vomiting [Unknown]
  - Mouth ulceration [Recovered/Resolved]
  - Inappropriate schedule of drug administration [Unknown]
  - Haemorrhoids [Recovered/Resolved]
  - Arthritis [Not Recovered/Not Resolved]
  - Abdominal pain upper [Unknown]
  - Vaginal infection [Recovered/Resolved]
  - Diarrhoea [Unknown]
  - Furuncle [Recovered/Resolved]
  - Influenza [Recovered/Resolved]
  - Muscle spasms [Unknown]
  - Pyrexia [Recovered/Resolved]

NARRATIVE: CASE EVENT DATE: 2013
